FAERS Safety Report 25563489 (Version 1)
Quarter: 2025Q3

REPORT INFORMATION
  Report Type: Spontaneous
  Country: EU (occurrence: EU)
  Receive Date: 20250716
  Receipt Date: 20250716
  Transmission Date: 20251020
  Serious: Yes (Hospitalization, Other)
  Sender: AMGEN
  Company Number: EU-AMGEN-FRASP2025134252

PATIENT
  Age: 48 Year
  Sex: Female

DRUGS (2)
  1. UPLIZNA [Suspect]
     Active Substance: INEBILIZUMAB-CDON
     Indication: Antisynthetase syndrome
     Route: 040
     Dates: start: 20241221
  2. UPLIZNA [Suspect]
     Active Substance: INEBILIZUMAB-CDON
     Indication: Off label use

REACTIONS (6)
  - Pulmonary embolism [Unknown]
  - Pneumonia [Unknown]
  - Neuralgia [Unknown]
  - Varicella virus test positive [Unknown]
  - Morbillivirus test positive [Unknown]
  - Off label use [Unknown]

NARRATIVE: CASE EVENT DATE: 20241221
